FAERS Safety Report 4302738-3 (Version None)
Quarter: 2004Q1

REPORT INFORMATION
  Report Type: 
  Country: None (occurrence: None)
  Receive Date: 20040126
  Receipt Date: 20031014
  Transmission Date: 20041129
  Serious: No
  Sender: FDA-Public Use
  Company Number: USA031049902

PATIENT
  Age: 6 Year
  Sex: Male
  Weight: 30 kg

DRUGS (2)
  1. STRATTERA [Suspect]
     Dosage: 36 MG/DAY
  2. ADVAIR DISKUS 100/50 [Concomitant]

REACTIONS (3)
  - DRUG INTERACTION [None]
  - TACHYCARDIA [None]
  - TIC [None]
